FAERS Safety Report 11194730 (Version 1)
Quarter: 2015Q2

REPORT INFORMATION
  Report Type: Report from Study
  Country: DE (occurrence: DE)
  Receive Date: 20150617
  Receipt Date: 20150617
  Transmission Date: 20150821
  Serious: Yes (Hospitalization)
  Sender: FDA-Public Use
  Company Number: DE-ROCHE-1593454

PATIENT
  Age: 70 Year
  Sex: Female

DRUGS (1)
  1. RITUXIMAB [Suspect]
     Active Substance: RITUXIMAB
     Indication: RHEUMATOID ARTHRITIS
     Dosage: LAST CYCLE OF 1000 MG RITUXIMAB PRIOR TO THE EVENT WAS ON 19/MAR/2014.
     Route: 065

REACTIONS (6)
  - Septic shock [Unknown]
  - Haemorrhoids [Unknown]
  - Hypochromic anaemia [Unknown]
  - Immunoglobulins decreased [Unknown]
  - Hiatus hernia [Unknown]
  - Pneumonia escherichia [Unknown]

NARRATIVE: CASE EVENT DATE: 20140912
